FAERS Safety Report 12308952 (Version 2)
Quarter: 2016Q3

REPORT INFORMATION
  Report Type: Spontaneous
  Country: CO (occurrence: CO)
  Receive Date: 20160427
  Receipt Date: 20160909
  Transmission Date: 20161109
  Serious: Yes (Other)
  Sender: FDA-Public Use
  Company Number: CO-BAXTER-2016BAX020502

PATIENT
  Age: 54 Year
  Sex: Female

DRUGS (7)
  1. NEVANAC [Concomitant]
     Active Substance: NEPAFENAC
     Indication: POSTOPERATIVE CARE
     Dosage: 1 DROP EVERY 6 HOUR
     Route: 047
     Dates: start: 20160413, end: 20160413
  2. DISCOVISC [Suspect]
     Active Substance: CHONDROITIN SULFATE (BOVINE)\HYALURONATE SODIUM
     Indication: SUPPORTIVE CARE
     Route: 031
     Dates: start: 20160413, end: 20160413
  3. PREDNISOLONE. [Concomitant]
     Active Substance: PREDNISOLONE
     Indication: POSTOPERATIVE CARE
     Dosage: 1 DROP EVERY 4 HOUR
     Route: 047
     Dates: start: 20160413, end: 20160413
  4. TRYPAN BLUE [Suspect]
     Active Substance: TRYPAN BLUE
     Indication: OPHTHALMOLOGICAL EXAMINATION
     Route: 031
     Dates: start: 20160413, end: 20160413
  5. VIGADEXA [Concomitant]
     Active Substance: DEXAMETHASONE SODIUM PHOSPHATE\MOXIFLOXACIN HYDROCHLORIDE
     Indication: POSTOPERATIVE CARE
     Dosage: 1 DROP EVERY 3 HOUR
     Route: 047
     Dates: start: 20160413, end: 20160413
  6. LACTATED RINGERS [Suspect]
     Active Substance: CALCIUM CHLORIDE\POTASSIUM CHLORIDE\SODIUM CHLORIDE\SODIUM LACTATE
     Indication: EYE IRRIGATION
     Dosage: ROUTE: OPTHALMOLOGIC IRRIGATION
     Route: 047
     Dates: start: 20160413, end: 20160413
  7. LACTATED RINGERS [Suspect]
     Active Substance: CALCIUM CHLORIDE\POTASSIUM CHLORIDE\SODIUM CHLORIDE\SODIUM LACTATE
     Indication: OFF LABEL USE

REACTIONS (3)
  - Corneal oedema [Recovered/Resolved]
  - Condition aggravated [Recovered/Resolved]
  - Vision blurred [Recovered/Resolved]

NARRATIVE: CASE EVENT DATE: 20160414
